FAERS Safety Report 12344318 (Version 2)
Quarter: 2016Q3

REPORT INFORMATION
  Report Type: Spontaneous
  Country: US (occurrence: US)
  Receive Date: 20160507
  Receipt Date: 20160829
  Transmission Date: 20161109
  Serious: Yes (Death, Hospitalization)
  Sender: FDA-Public Use
  Company Number: US-JNJFOC-20160426438

PATIENT
  Age: 89 Year
  Sex: Female

DRUGS (1)
  1. XARELTO [Suspect]
     Active Substance: RIVAROXABAN
     Indication: THROMBOSIS PROPHYLAXIS
     Dosage: 10 MG - 15 MG
     Route: 048
     Dates: start: 20140725, end: 20141021

REACTIONS (2)
  - Cerebral haemorrhage [Fatal]
  - Pneumonia necrotising [Fatal]

NARRATIVE: CASE EVENT DATE: 201410
